FAERS Safety Report 5605281-4 (Version None)
Quarter: 2008Q1

REPORT INFORMATION
  Report Type: 
  Country: None (occurrence: None)
  Receive Date: 20080129
  Receipt Date: 20080116
  Transmission Date: 20080703
  Serious: Yes (Hospitalization)
  Sender: FDA-Public Use
  Company Number: FR-PFIZER INC-2008005521

PATIENT
  Sex: Female

DRUGS (5)
  1. AMLOR [Suspect]
     Dosage: TEXT:1 DOSE FORM
     Route: 048
     Dates: start: 20070901, end: 20071004
  2. RILMENIDINE [Suspect]
     Dosage: TEXT:1 DOSE FORM
     Route: 048
     Dates: start: 20070101, end: 20071004
  3. DETENSIEL [Concomitant]
     Dosage: TEXT:1 DOSE FORM
     Route: 048
  4. PREVISCAN [Concomitant]
     Route: 048
  5. COTAREG [Concomitant]
     Dosage: TEXT:1 DOSE FORM
     Route: 048

REACTIONS (1)
  - RHABDOMYOLYSIS [None]
